FAERS Safety Report 20406943 (Version 2)
Quarter: 2022Q1

REPORT INFORMATION
  Report Type: Report from Study
  Country: IT (occurrence: IT)
  Receive Date: 20220131
  Receipt Date: 20220217
  Transmission Date: 20220424
  Serious: Yes (Hospitalization, Other)
  Sender: FDA-Public Use
  Company Number: None

PATIENT
  Age: 1 Year
  Sex: Female

DRUGS (1)
  1. MENINGOCOCCAL GROUP B VACCINE [Suspect]
     Active Substance: MENINGOCOCCAL GROUP B VACCINE
     Indication: Prophylaxis
     Dosage: .5 ML
     Route: 065
     Dates: start: 20210623

REACTIONS (4)
  - Seizure [Unknown]
  - Cough [Unknown]
  - Pyrexia [Unknown]
  - Rhinorrhoea [Unknown]

NARRATIVE: CASE EVENT DATE: 20210628
